FAERS Safety Report 18584818 (Version 1)
Quarter: 2020Q4

REPORT INFORMATION
  Report Type: Spontaneous
  Country: US (occurrence: US)
  Receive Date: 20201207
  Receipt Date: 20201207
  Transmission Date: 20210114
  Serious: Yes (Hospitalization)
  Sender: FDA-Public Use
  Company Number: US-LEADINGPHARMA-US-2020LEALIT00038

PATIENT
  Age: 58 Year
  Sex: Female

DRUGS (6)
  1. NORMAL SALINE [Interacting]
     Active Substance: SODIUM CHLORIDE
     Indication: HYPONATRAEMIA
     Dosage: 500 ML OF 0.9%
     Route: 065
  2. NORMAL SALINE [Interacting]
     Active Substance: SODIUM CHLORIDE
     Indication: HYPOVOLAEMIA
     Dosage: 100 ML/H
     Route: 065
  3. FUROSEMIDE TABLETS USP [Suspect]
     Active Substance: FUROSEMIDE
     Indication: HYPOVOLAEMIA
     Route: 065
  4. FUROSEMIDE TABLETS USP [Suspect]
     Active Substance: FUROSEMIDE
     Indication: HYPONATRAEMIA
     Route: 042
  5. ALBUMIN [Suspect]
     Active Substance: ALBUMIN HUMAN
     Indication: HYPOVOLAEMIA
  6. ALBUMIN [Suspect]
     Active Substance: ALBUMIN HUMAN
     Indication: HYPONATRAEMIA
     Route: 065

REACTIONS (5)
  - Hypovolaemia [Recovering/Resolving]
  - Breath sounds abnormal [Unknown]
  - Hyponatraemia [Recovering/Resolving]
  - Abdominal distension [Unknown]
  - Oedema [Unknown]
